FAERS Safety Report 10220629 (Version 3)
Quarter: 2014Q3

REPORT INFORMATION
  Report Type: Spontaneous
  Country: ES (occurrence: ES)
  Receive Date: 20140606
  Receipt Date: 20140905
  Transmission Date: 20150326
  Serious: Yes (Death, Hospitalization, Disabling, Other)
  Sender: FDA-Public Use
  Company Number: ES-009507513-1406ESP000938

PATIENT
  Age: 36 Year
  Sex: Male
  Weight: 38 kg

DRUGS (3)
  1. FOSCARNET SODIUM. [Concomitant]
     Active Substance: FOSCARNET SODIUM
     Indication: CYTOMEGALOVIRUS INFECTION
     Dosage: UNK
     Route: 042
     Dates: start: 20140416, end: 20140502
  2. NOXAFIL [Suspect]
     Active Substance: POSACONAZOLE
     Indication: ZYGOMYCOSIS
     Dosage: 100 MG, TID
     Route: 048
     Dates: start: 20140416, end: 20140521
  3. NOXAFIL [Suspect]
     Active Substance: POSACONAZOLE
     Indication: ZYGOMYCOSIS
     Dosage: 200 MG/6H
     Route: 048
     Dates: start: 20140210, end: 20140415

REACTIONS (2)
  - Ischaemic stroke [Recovered/Resolved with Sequelae]
  - Ischaemic stroke [Fatal]

NARRATIVE: CASE EVENT DATE: 20140428
